FAERS Safety Report 14655613 (Version 3)
Quarter: 2018Q2

REPORT INFORMATION
  Report Type: Spontaneous
  Country: US (occurrence: US)
  Receive Date: 20180319
  Receipt Date: 20180420
  Transmission Date: 20180711
  Serious: Yes (Hospitalization, Other)
  Sender: FDA-Public Use
  Company Number: US-TEVA-2018-US-872466

PATIENT
  Age: 68 Year
  Sex: Female
  Weight: 81.1 kg

DRUGS (28)
  1. LEUCOVORIN CALCIUM. [Concomitant]
     Active Substance: LEUCOVORIN CALCIUM
     Indication: RHEUMATOID ARTHRITIS
     Route: 048
     Dates: start: 201706
  2. MYRBETRIQ [Concomitant]
     Active Substance: MIRABEGRON
     Indication: RHEUMATOID ARTHRITIS
     Route: 048
     Dates: start: 201706
  3. ASPIRIN. [Concomitant]
     Active Substance: ASPIRIN
     Dates: start: 2015
  4. ACETAMINOPHEN. [Concomitant]
     Active Substance: ACETAMINOPHEN
     Dates: start: 20180208, end: 20180209
  5. HYDROMORPHONE [Concomitant]
     Active Substance: HYDROMORPHONE
     Dates: start: 20180208, end: 20180209
  6. ONDANSETRON [Concomitant]
     Active Substance: ONDANSETRON
     Dates: start: 20180208, end: 20180209
  7. FERROUS SULFATE. [Concomitant]
     Active Substance: FERROUS SULFATE
     Dates: start: 20180208, end: 20180209
  8. DOXYCYCLINE. [Concomitant]
     Active Substance: DOXYCYCLINE
     Indication: BRONCHITIS
     Route: 048
     Dates: start: 20180126
  9. PANTOPRAZOL [Concomitant]
     Active Substance: PANTOPRAZOLE SODIUM
     Route: 065
  10. MAG AL PLUS XS [Concomitant]
     Dates: start: 20180208, end: 20180209
  11. SIMETHICONE (DIMETHICONE) [Concomitant]
     Active Substance: DIMETHICONE
     Dates: start: 20180208, end: 20180209
  12. METHOTREXATE. [Suspect]
     Active Substance: METHOTREXATE
     Indication: RHEUMATOID ARTHRITIS
     Route: 048
     Dates: start: 2009
  13. BISACODYL. [Concomitant]
     Active Substance: BISACODYL
     Dates: start: 20180208, end: 20180209
  14. OXYCODONE W/PARACETAMOL [Concomitant]
     Active Substance: ACETAMINOPHEN\OXYCODONE HYDROCHLORIDE
     Dates: start: 20180208, end: 20180209
  15. NAPROXEN. [Concomitant]
     Active Substance: NAPROXEN
     Route: 065
  16. FILGOTINIB [Concomitant]
     Active Substance: FILGOTINIB
     Indication: RHEUMATOID ARTHRITIS
     Route: 048
     Dates: start: 20180216
  17. ATENOLOL. [Concomitant]
     Active Substance: ATENOLOL
     Dates: start: 2002
  18. FILGOTINIB [Concomitant]
     Active Substance: FILGOTINIB
     Route: 048
     Dates: start: 20170914, end: 20180208
  19. HYDROXYCHLOROQUINE [Concomitant]
     Active Substance: HYDROXYCHLOROQUINE
     Indication: RHEUMATOID ARTHRITIS
     Route: 048
     Dates: start: 201701
  20. LORATADINE. [Concomitant]
     Active Substance: LORATADINE
     Dates: start: 20180210
  21. DEXTROSE. [Concomitant]
     Active Substance: DEXTROSE
     Dates: start: 20180208, end: 20180209
  22. LEVOTHYROXINE. [Concomitant]
     Active Substance: LEVOTHYROXINE
     Dates: start: 2005
  23. ESTRACE [Concomitant]
     Active Substance: ESTRADIOL
     Dates: start: 2015
  24. MECLIZINE [Concomitant]
     Active Substance: MECLIZINE HYDROCHLORIDE
  25. HYDROCODONE [Concomitant]
     Active Substance: HYDROCODONE
     Dates: start: 20180210, end: 20180215
  26. AMITRIPTYLINE [Concomitant]
     Active Substance: AMITRIPTYLINE
     Dates: start: 1987
  27. CLINDAMYCIN. [Concomitant]
     Active Substance: CLINDAMYCIN
     Dates: start: 20180208, end: 20180209
  28. ENOXAPARIN [Concomitant]
     Active Substance: ENOXAPARIN
     Dates: start: 20180208, end: 20180209

REACTIONS (5)
  - Laceration [Recovered/Resolved]
  - Fall [Unknown]
  - Vertigo [Recovered/Resolved]
  - Concussion [Recovered/Resolved]
  - Rib fracture [Not Recovered/Not Resolved]

NARRATIVE: CASE EVENT DATE: 20180208
